FAERS Safety Report 7825601-X (Version None)
Quarter: 2011Q4

REPORT INFORMATION
  Report Type: 
  Country: None (occurrence: None)
  Receive Date: 20111017
  Receipt Date: 20111003
  Transmission Date: 20120403
  Serious: Yes (Other)
  Sender: FDA-Public Use
  Company Number: 2011P1009288

PATIENT
  Age: 19 Year
  Sex: Male

DRUGS (3)
  1. UNSPECIFIED STANDARD ANALGESIC MEDICATIONS [Concomitant]
  2. FENTANYL [Suspect]
     Indication: TRIGEMINAL NEURALGIA
     Dosage: 800 UG;QID;, 9600-1200 UG;QD;
  3. CARBAMAZEPINE [Concomitant]

REACTIONS (5)
  - TOOTH LOSS [None]
  - TOOTH DISORDER [None]
  - OFF LABEL USE [None]
  - DRUG ABUSE [None]
  - DENTAL CARIES [None]
